FAERS Safety Report 19561125 (Version 2)
Quarter: 2021Q4

REPORT INFORMATION
  Report Type: Report from Study
  Country: PE (occurrence: PE)
  Receive Date: 20210715
  Receipt Date: 20211129
  Transmission Date: 20220303
  Serious: Yes (Other)
  Sender: FDA-Public Use
  Company Number: PE-TAKEDA-2021TUS026474

PATIENT
  Sex: Female

DRUGS (2)
  1. BRENTUXIMAB VEDOTIN [Suspect]
     Active Substance: BRENTUXIMAB VEDOTIN
     Indication: Hodgkin^s disease
     Dosage: 100 MILLIGRAM, Q3WEEKS
     Route: 042
     Dates: start: 20200923
  2. COVID-19 VACCINE [Concomitant]
     Dosage: UNK
     Dates: start: 20210612

REACTIONS (5)
  - Hodgkin^s disease [Unknown]
  - Feeling abnormal [Unknown]
  - Transaminases increased [Unknown]
  - Constipation [Recovering/Resolving]
  - Decreased appetite [Recovering/Resolving]
